FAERS Safety Report 20745481 (Version 3)
Quarter: 2022Q2

REPORT INFORMATION
  Report Type: Report from Study
  Country: US (occurrence: US)
  Receive Date: 20220425
  Receipt Date: 20220511
  Transmission Date: 20220721
  Serious: Yes (Other)
  Sender: FDA-Public Use
  Company Number: US-BRISTOL-MYERS SQUIBB COMPANY-BMS-2022-024787

PATIENT
  Sex: Female
  Weight: 81.64 kg

DRUGS (1)
  1. ABATACEPT [Suspect]
     Active Substance: ABATACEPT
     Indication: Arthritis
     Dosage: UNK QWK PRESENTATION:125MG CLICKJECT AUTOINJECTOR?EXP DATE: FEB-2023
     Route: 058

REACTIONS (2)
  - Device malfunction [Unknown]
  - Device issue [Unknown]
